FAERS Safety Report 18259120 (Version 9)
Quarter: 2020Q4

REPORT INFORMATION
  Report Type: Report from Study
  Country: US (occurrence: US)
  Receive Date: 20200911
  Receipt Date: 20201203
  Transmission Date: 20210113
  Serious: No
  Sender: FDA-Public Use
  Company Number: NVSC2020US249260

PATIENT
  Age: 43 Year
  Sex: Female

DRUGS (3)
  1. COSENTYX [Suspect]
     Active Substance: SECUKINUMAB
     Dosage: 2 DF, UNKNOWN
     Route: 065
  2. COSENTYX [Suspect]
     Active Substance: SECUKINUMAB
     Indication: PSORIATIC ARTHROPATHY
     Dosage: UNK
     Route: 065
  3. COSENTYX [Suspect]
     Active Substance: SECUKINUMAB
     Dosage: 300 MG, QW4 (FIRST MAINT DOSE)
     Route: 058
     Dates: start: 20201008

REACTIONS (7)
  - Injection site pain [Unknown]
  - Headache [Unknown]
  - Pain in extremity [Unknown]
  - Psoriasis [Unknown]
  - Needle issue [Unknown]
  - Pain [Recovered/Resolved]
  - Pruritus [Unknown]
